FAERS Safety Report 7555826-2 (Version None)
Quarter: 2011Q2

REPORT INFORMATION
  Report Type: 
  Country: None (occurrence: None)
  Receive Date: 20110618
  Receipt Date: 20110608
  Transmission Date: 20111010
  Serious: Yes (Hospitalization, Other)
  Sender: FDA-Public Use
  Company Number: US-BAYER-201024722NA

PATIENT
  Age: 20 Year
  Sex: Female
  Weight: 63.636 kg

DRUGS (33)
  1. YASMIN [Suspect]
     Indication: ORAL CONTRACEPTION
     Dosage: UNK
     Route: 048
     Dates: start: 20051101, end: 20090101
  2. DROSPIRENONE AND ETHINYL ESTRADIOL [Suspect]
     Indication: ORAL CONTRACEPTION
     Route: 048
     Dates: start: 20080521, end: 20081201
  3. ACETAMINOPHEN [Concomitant]
  4. ZITHROMAX [Concomitant]
     Dates: start: 20070901
  5. NASONEX [Concomitant]
     Dates: start: 20070401
  6. LEVAQUIN [Concomitant]
     Dates: start: 20070501
  7. TRETINOIN [Concomitant]
     Dates: start: 20070401
  8. TRAMADOL HCL [Concomitant]
     Dates: start: 20070501
  9. ORPHENADRINE CITRATE [Concomitant]
     Dates: start: 20070501
  10. IBUPROFEN [Concomitant]
  11. AZITHROMYCIN [Concomitant]
     Dates: start: 20061001
  12. TRIAMCINOLONE [Concomitant]
     Dates: start: 20070401
  13. CLINDESSE [Concomitant]
     Route: 067
     Dates: start: 20070801
  14. CLINDAMYCIN [Concomitant]
     Dates: start: 20070401
  15. METHYLPREDNISOLONE [Concomitant]
     Dates: start: 20051001
  16. HYDROCODONE [Concomitant]
     Dates: start: 20051001
  17. AMOXICILLIN [Concomitant]
     Dates: start: 20051001, end: 20070401
  18. TRINESSA [Concomitant]
     Dates: start: 20050401
  19. CEPHALEXIN [Concomitant]
     Dates: start: 20071001
  20. ALLEGRA [Concomitant]
     Dates: start: 20070401
  21. TRIAZOLAM [Concomitant]
     Dates: start: 20051001
  22. ECONAZOLE NITRATE [Concomitant]
     Dates: start: 20070801
  23. SULFONAMIDES AND TRIMETHOPRIM [Concomitant]
     Dates: start: 20071201
  24. METRONIDAZOLE [Concomitant]
     Dates: start: 20081201
  25. METROGEL [Concomitant]
     Dates: start: 20080901
  26. METRONIDAZOLE [Concomitant]
     Dates: start: 20080801
  27. SMZ-TMP [Concomitant]
     Dates: start: 20090401
  28. DOXYCYCLINE HYCLATE [Concomitant]
     Dates: start: 20070801
  29. PROPOXYPHENE NAPSYLATE [Concomitant]
     Dates: start: 20070701
  30. ZITHROMAX [Concomitant]
  31. METRONIDAZOLE [Concomitant]
     Dates: start: 20070601
  32. DIFFERIN [Concomitant]
     Dates: start: 20080701
  33. PROMETHAZINE [Concomitant]
     Dates: start: 20051001

REACTIONS (3)
  - GALLBLADDER DISORDER [None]
  - CHOLECYSTITIS [None]
  - PAIN [None]
